FAERS Safety Report 6971596-0 (Version None)
Quarter: 2010Q3

REPORT INFORMATION
  Report Type: 
  Country: None (occurrence: None)
  Receive Date: 20100908
  Receipt Date: 20100902
  Transmission Date: 20110219
  Serious: Yes (Hospitalization, Other)
  Sender: FDA-Public Use
  Company Number: US-GENZYME-CLOF-1001138

PATIENT
  Sex: Female
  Weight: 67 kg

DRUGS (3)
  1. CLOLAR [Suspect]
     Indication: ACUTE MYELOID LEUKAEMIA
     Dosage: 34 MG, QDX5
     Route: 042
     Dates: start: 20100807, end: 20100811
  2. ETOPOSIDE [Suspect]
     Indication: ACUTE MYELOID LEUKAEMIA
     Dosage: UNK UNK, QDX5
     Route: 065
     Dates: start: 20100806, end: 20100810
  3. MITOXANTRONE [Suspect]
     Indication: ACUTE MYELOID LEUKAEMIA
     Dosage: UNK UNK, QD
     Route: 065
     Dates: start: 20100806, end: 20100810

REACTIONS (5)
  - CARDIAC FAILURE CONGESTIVE [None]
  - CELLULITIS [None]
  - LOCAL SWELLING [None]
  - MOUTH HAEMORRHAGE [None]
  - SWELLING FACE [None]
